FAERS Safety Report 16565522 (Version 3)
Quarter: 2019Q3

REPORT INFORMATION
  Report Type: Spontaneous
  Country: CZ (occurrence: CZ)
  Receive Date: 20190712
  Receipt Date: 20190729
  Transmission Date: 20191004
  Serious: Yes (Hospitalization, Other)
  Sender: FDA-Public Use
  Company Number: CZ-MYLANLABS-2019M1063058

PATIENT
  Age: 72 Year
  Sex: Female

DRUGS (8)
  1. CAPECITABINE. [Suspect]
     Active Substance: CAPECITABINE
     Indication: PHAEOCHROMOCYTOMA
     Dosage: UNK
     Route: 048
     Dates: start: 201508, end: 201801
  2. DOXORUBICIN [Concomitant]
     Active Substance: DOXORUBICIN
     Indication: PHAEOCHROMOCYTOMA
     Dosage: UNK
     Dates: start: 201206
  3. SUNITINIB [Concomitant]
     Active Substance: SUNITINIB
     Indication: PHAEOCHROMOCYTOMA
     Dosage: DOSE OF 37 MG ON DAYS 1 ? 28 WITH
     Dates: start: 201301
  4. CAPECITABINE. [Suspect]
     Active Substance: CAPECITABINE
     Indication: PHAEOCHROMOCYTOMA MALIGNANT
     Dosage: UNK
     Route: 065
     Dates: start: 201801, end: 2018
  5. LANREOTIDE [Concomitant]
     Active Substance: LANREOTIDE
     Indication: PHAEOCHROMOCYTOMA
  6. SUNITINIB [Concomitant]
     Active Substance: SUNITINIB
     Dosage: DOSE REDUCTION AFTER 2 MONTHS TO 25 MG.
     Dates: end: 201508
  7. CAPECITABINE. [Suspect]
     Active Substance: CAPECITABINE
     Indication: NEUROENDOCRINE TUMOUR
     Dosage: UNK
     Dates: start: 201508, end: 2018
  8. LANREOTIDE [Concomitant]
     Active Substance: LANREOTIDE
     Indication: NEUROENDOCRINE TUMOUR
     Dosage: AT INTERVALS OF 28 DAYS
     Route: 065

REACTIONS (4)
  - Sinusitis aspergillus [Recovered/Resolved]
  - Product use in unapproved indication [Unknown]
  - Off label use [Unknown]
  - Aspergillus infection [Unknown]

NARRATIVE: CASE EVENT DATE: 201801
